FAERS Safety Report 11704401 (Version 1)
Quarter: 2015Q4

REPORT INFORMATION
  Report Type: Report from Study
  Country: US (occurrence: US)
  Receive Date: 20151106
  Receipt Date: 20151106
  Transmission Date: 20160304
  Serious: Yes (Hospitalization)
  Sender: FDA-Public Use
  Company Number: US-BIOGENIDEC-2015BI145327

PATIENT
  Sex: Female

DRUGS (12)
  1. HYOSCYAMINE. [Concomitant]
     Active Substance: HYOSCYAMINE
  2. ADAPIN [Concomitant]
     Active Substance: DOXEPIN HYDROCHLORIDE
  3. SURBEX [Concomitant]
  4. OXYBUTYNIN CHLORIDE. [Concomitant]
     Active Substance: OXYBUTYNIN CHLORIDE
  5. AMPYRA [Concomitant]
     Active Substance: DALFAMPRIDINE
  6. DETROL [Concomitant]
     Active Substance: TOLTERODINE TARTRATE
  7. EVENING PRIMROSE [Concomitant]
  8. T-REGENESIS [Concomitant]
  9. TECFIDERA [Suspect]
     Active Substance: DIMETHYL FUMARATE
     Indication: MULTIPLE SCLEROSIS
     Route: 048
     Dates: start: 20150113
  10. VITAMIN B12 [Concomitant]
     Active Substance: CYANOCOBALAMIN
  11. CRANBERRY. [Concomitant]
     Active Substance: CRANBERRY
  12. VITAMIN D [Concomitant]
     Active Substance: CHOLECALCIFEROL

REACTIONS (1)
  - Urinary tract infection [Recovered/Resolved]
